FAERS Safety Report 13068543 (Version 2)
Quarter: 2016Q4

REPORT INFORMATION
  Report Type: Spontaneous
  Country: US (occurrence: US)
  Receive Date: 20161228
  Receipt Date: 20161230
  Transmission Date: 20170207
  Serious: Yes (Other)
  Sender: FDA-Public Use
  Company Number: US-PFIZER INC-2016597645

PATIENT
  Age: 68 Year
  Sex: Female
  Weight: 73 kg

DRUGS (9)
  1. HYDROCODONE [Concomitant]
     Active Substance: HYDROCODONE
     Indication: PAIN
     Dosage: UNK UNK, AS NEEDED, ^10/325MG^
     Dates: start: 2013
  2. LYRICA [Suspect]
     Active Substance: PREGABALIN
     Indication: FIBROMYALGIA
     Dosage: 75 MG, 3X/DAY
     Route: 048
     Dates: start: 2016
  3. LEVOTHYROXINE. [Concomitant]
     Active Substance: LEVOTHYROXINE
     Indication: THYROID DISORDER
     Dosage: 75 UG, 1X/DAY, ^TAKES IT ONCE IN THE MORNING DAY^
  4. LYRICA [Suspect]
     Active Substance: PREGABALIN
     Indication: POST HERPETIC NEURALGIA
  5. LYRICA [Suspect]
     Active Substance: PREGABALIN
     Indication: VERTIGO
     Dosage: 75 MG, 2X/DAY
     Route: 048
     Dates: start: 2016
  6. PROMETHAZINE [Concomitant]
     Active Substance: PROMETHAZINE\PROMETHAZINE HYDROCHLORIDE
     Indication: NAUSEA
     Dosage: ^USED TO TAKE THIS EVERY 4 TO 6 HOURS BEFORE TAKING LYRICA^
  7. PROMETHAZINE [Concomitant]
     Active Substance: PROMETHAZINE\PROMETHAZINE HYDROCHLORIDE
     Dosage: 25 MG, AS NEEDED, ^SOMTIMES DONT TAKE IT FOR 2 OR 3 WEEKS^
  8. TOPAMAX [Concomitant]
     Active Substance: TOPIRAMATE
     Indication: VERTIGO
     Dosage: 50 MG, 1X/DAY, ^TAKES IT ONCE AT NIGHT^
  9. VALTREX [Concomitant]
     Active Substance: VALACYCLOVIR HYDROCHLORIDE
     Indication: HERPES ZOSTER
     Dosage: 500 MG, UNK, ^500MG TAKES DAILY, AS NEEDED. PROPHYLACTIC DOSE^
     Dates: end: 201612

REACTIONS (4)
  - Dizziness [Recovered/Resolved]
  - Hepatic neoplasm [Unknown]
  - Pulmonary mass [Unknown]
  - Vision blurred [Not Recovered/Not Resolved]

NARRATIVE: CASE EVENT DATE: 2016
